FAERS Safety Report 15752921 (Version 2)
Quarter: 2019Q1

REPORT INFORMATION
  Report Type: Spontaneous
  Country: RU (occurrence: RU)
  Receive Date: 20181221
  Receipt Date: 20190304
  Transmission Date: 20190417
  Serious: Yes (Other)
  Sender: FDA-Public Use
  Company Number: RU-BIOGEN-2018BI00627479

PATIENT
  Sex: Male

DRUGS (1)
  1. TYSABRI [Suspect]
     Active Substance: NATALIZUMAB
     Indication: MULTIPLE SCLEROSIS
     Route: 050
     Dates: start: 20180126

REACTIONS (7)
  - Multiple sclerosis [Unknown]
  - Paralysis [Unknown]
  - Motor dysfunction [Unknown]
  - Headache [Unknown]
  - Drug ineffective [Unknown]
  - Speech disorder [Unknown]
  - Fall [Recovered/Resolved]

NARRATIVE: CASE EVENT DATE: 20180816
